FAERS Safety Report 9607511 (Version 1)
Quarter: 2013Q4

REPORT INFORMATION
  Report Type: Spontaneous
  Country: FR (occurrence: FR)
  Receive Date: 20131009
  Receipt Date: 20131009
  Transmission Date: 20140711
  Serious: Yes (Other)
  Sender: FDA-Public Use
  Company Number: FR-JNJFOC-20131002537

PATIENT
  Age: 46 Year
  Sex: Female

DRUGS (2)
  1. DOXORUBICIN HYDROCHLORIDE (CAELYX) [Suspect]
     Indication: MYCOSIS FUNGOIDES
     Route: 042
     Dates: start: 20130708, end: 20130722
  2. DOXORUBICIN HYDROCHLORIDE (CAELYX) [Suspect]
     Indication: MYCOSIS FUNGOIDES
     Route: 042
     Dates: start: 20130805, end: 20130819

REACTIONS (3)
  - Hand-foot-genital syndrome [Recovering/Resolving]
  - Mucosal inflammation [Recovering/Resolving]
  - Off label use [Unknown]
